FAERS Safety Report 9746208 (Version 2)
Quarter: 2014Q1

REPORT INFORMATION
  Report Type: Spontaneous
  Country: US (occurrence: US)
  Receive Date: 20131211
  Receipt Date: 20140321
  Transmission Date: 20141002
  Serious: Yes (Hospitalization, Other)
  Sender: FDA-Public Use
  Company Number: GXBR2013US002075

PATIENT
  Age: 14 Year
  Sex: Male
  Weight: 53.2 kg

DRUGS (3)
  1. OMNITROPE [Suspect]
     Indication: GROWTH HORMONE DEFICIENCY
     Dosage: 2 MG, UNK
     Route: 058
     Dates: start: 201310, end: 20131207
  2. ENALAPRIL [Concomitant]
     Indication: UNIVENTRICULAR HEART
     Dosage: 2.5 MG, BID
  3. ASPIRIN [Concomitant]
     Indication: UNIVENTRICULAR HEART
     Dosage: 81 MG, QD

REACTIONS (6)
  - Anaemia [Recovering/Resolving]
  - Protein-losing gastroenteropathy [Recovering/Resolving]
  - Iron deficiency [Recovering/Resolving]
  - Asthenia [Recovering/Resolving]
  - Abdominal pain [Recovering/Resolving]
  - Vomiting [Recovering/Resolving]
